FAERS Safety Report 17729919 (Version 1)
Quarter: 2020Q2

REPORT INFORMATION
  Report Type: Spontaneous
  Country: US (occurrence: US)
  Receive Date: 20200430
  Receipt Date: 20200430
  Transmission Date: 20200714
  Serious: No
  Sender: FDA-Public Use
  Company Number: US-TEVA-2020-US-1228934

PATIENT
  Sex: Female

DRUGS (1)
  1. BUPRENORPHINE. [Suspect]
     Active Substance: BUPRENORPHINE
     Dosage: DOSE AND FREQUENCY 15 MCG/H EVERY 7
     Route: 062

REACTIONS (4)
  - Product adhesion issue [Recovered/Resolved]
  - Product quality issue [Unknown]
  - Hypersensitivity [Unknown]
  - Application site rash [Not Recovered/Not Resolved]
